FAERS Safety Report 6085788-9 (Version None)
Quarter: 2009Q1

REPORT INFORMATION
  Report Type: 
  Country: None (occurrence: None)
  Receive Date: 20090220
  Receipt Date: 20080326
  Transmission Date: 20090719
  Serious: No
  Sender: FDA-Public Use
  Company Number: US-BRISTOL-MYERS SQUIBB COMPANY-14127476

PATIENT
  Age: 3 Decade
  Sex: Female

DRUGS (1)
  1. MITOTANE [Suspect]
     Indication: ADRENAL CARCINOMA
     Dates: start: 20080101

REACTIONS (1)
  - JAUNDICE [None]
